FAERS Safety Report 4584042-1 (Version None)
Quarter: 2005Q1

REPORT INFORMATION
  Report Type: 
  Country: None (occurrence: None)
  Receive Date: 20050216
  Receipt Date: 20050203
  Transmission Date: 20050727
  Serious: Yes (Death, Hospitalization)
  Sender: FDA-Public Use
  Company Number: BEWYE398303FEB05

PATIENT
  Sex: Female

DRUGS (7)
  1. ENBREL [Suspect]
     Indication: RHEUMATOID ARTHRITIS
     Dosage: 25 MG TWO TIMES A WEEK
     Route: 058
     Dates: start: 20040401, end: 20040801
  2. ACETYLSALICYLIC ACID [Concomitant]
     Route: 048
  3. ATACAND [Concomitant]
     Route: 048
  4. FOSAMAX [Concomitant]
     Route: 048
  5. ELTHYRONE [Concomitant]
     Route: 048
  6. MEDROL [Concomitant]
     Route: 048
  7. IMURAN [Concomitant]

REACTIONS (4)
  - ACUTE ABDOMEN [None]
  - COLITIS ULCERATIVE [None]
  - ENTEROVESICAL FISTULA [None]
  - HAEMOGLOBIN DECREASED [None]
